FAERS Safety Report 6245398-7 (Version None)
Quarter: 2009Q2

REPORT INFORMATION
  Report Type: 
  Country: None (occurrence: None)
  Receive Date: 20090619
  Receipt Date: 20090318
  Transmission Date: 20091009
  Serious: No
  Sender: FDA-Public Use
  Company Number: ALL1-2009-00730

PATIENT
  Age: 51 Year
  Sex: Male
  Weight: 80.7 kg

DRUGS (2)
  1. VYVANSE [Suspect]
     Indication: ATTENTION DEFICIT/HYPERACTIVITY DISORDER
     Dosage: 70 MG, 1X/DAY:QD, ORAL
     Route: 048
     Dates: start: 20090101, end: 20090101
  2. DEXTROAMPHETAMINE (DEXTROAMPHETAMINE) [Concomitant]

REACTIONS (2)
  - DRUG DIVERSION [None]
  - NONTHERAPEUTIC AGENT URINE POSITIVE [None]
